FAERS Safety Report 8215982-X (Version None)
Quarter: 2012Q1

REPORT INFORMATION
  Report Type: 
  Country: None (occurrence: None)
  Receive Date: 20120316
  Receipt Date: 20120312
  Transmission Date: 20120608
  Serious: No
  Sender: FDA-Public Use
  Company Number: US-PFIZER INC-2012066068

PATIENT
  Sex: Female
  Weight: 80.726 kg

DRUGS (1)
  1. LEVOXYL [Suspect]
     Indication: POST PROCEDURAL HYPOTHYROIDISM
     Dosage: UNK

REACTIONS (1)
  - ASTHENIA [None]
